FAERS Safety Report 14172331 (Version 5)
Quarter: 2020Q1

REPORT INFORMATION
  Report Type: Report from Study
  Country: US (occurrence: US)
  Receive Date: 20171109
  Receipt Date: 20200129
  Transmission Date: 20200409
  Serious: Yes (Other)
  Sender: FDA-Public Use
  Company Number: US-ROCHE-2020789

PATIENT

DRUGS (4)
  1. ACALABRUTINIB. [Suspect]
     Active Substance: ACALABRUTINIB
     Indication: LYMPHOCYTIC LEUKAEMIA
  2. ACALABRUTINIB. [Suspect]
     Active Substance: ACALABRUTINIB
     Indication: CHRONIC LYMPHOCYTIC LEUKAEMIA
     Dosage: 100 MG TWICE A DAY OR 200 MG PER DAY LATER SWITCHED TO 100 MG TWICE A DAY
     Route: 048
  3. OBINUTUZUMAB. [Suspect]
     Active Substance: OBINUTUZUMAB
     Indication: LYMPHOCYTIC LEUKAEMIA
  4. OBINUTUZUMAB. [Suspect]
     Active Substance: OBINUTUZUMAB
     Indication: CHRONIC LYMPHOCYTIC LEUKAEMIA
     Dosage: DAYS 1 (100 MG), 2 (900 MG), 8 AND 15 (1000 MG) OF CYCLE 2 AND DAY 1 (1000 MG) OF CYCLES 3 TO 7.
     Route: 042

REACTIONS (27)
  - Diarrhoea [Unknown]
  - Pneumonia [Unknown]
  - Atrial fibrillation [Unknown]
  - Vomiting [Unknown]
  - Sinusitis [Unknown]
  - Hypertension [Unknown]
  - Neutrophil count decreased [Unknown]
  - Platelet count decreased [Unknown]
  - Dyspnoea [Unknown]
  - Cough [Unknown]
  - Fatigue [Unknown]
  - Back pain [Unknown]
  - Rash maculo-papular [Unknown]
  - Pyrexia [Unknown]
  - Hypophosphataemia [Unknown]
  - Cellulitis [Unknown]
  - Haematuria [Unknown]
  - Headache [Unknown]
  - Fall [Unknown]
  - Muscle haemorrhage [Unknown]
  - Oedema peripheral [Unknown]
  - Oropharyngeal pain [Unknown]
  - Syncope [Unknown]
  - Weight increased [Unknown]
  - Arthralgia [Unknown]
  - Anaemia [Unknown]
  - Tumour lysis syndrome [Unknown]
